FAERS Safety Report 18510801 (Version 1)
Quarter: 2020Q4

REPORT INFORMATION
  Report Type: Spontaneous
  Country: US (occurrence: US)
  Receive Date: 20201116
  Receipt Date: 20201116
  Transmission Date: 20210114
  Serious: Yes (Death)
  Sender: FDA-Public Use
  Company Number: None

PATIENT
  Age: 17 Year
  Sex: Female

DRUGS (9)
  1. DIVALPROEX DR 125MG [Concomitant]
     Dates: start: 20190918, end: 20201112
  2. EPIDIOLEX [Suspect]
     Active Substance: CANNABIDIOL
     Indication: EPILEPSY
     Dosage: ?          OTHER ROUTE:G-TUBE?
     Dates: start: 20200921, end: 20201112
  3. BACLOFEN 5MG [Concomitant]
     Dates: start: 20200521, end: 20201112
  4. SODIUM CHLORIDE 3% NEBULIZER SOLUTION [Concomitant]
     Dates: start: 20201021, end: 20201112
  5. TRICITRATES SOLUTION [Concomitant]
     Dates: start: 20190717, end: 20201112
  6. CLOBAZAM 20MG [Concomitant]
     Dates: start: 20191008, end: 20201112
  7. FYCOMPA 4MG [Concomitant]
     Dates: start: 20191008, end: 20201112
  8. LEVOCARNITINE 330MG [Concomitant]
     Dates: start: 20181107, end: 20201112
  9. LEVETIRACETAM 500MG [Concomitant]
     Active Substance: LEVETIRACETAM
     Dates: start: 20200427, end: 20201112

REACTIONS (1)
  - Death [None]

NARRATIVE: CASE EVENT DATE: 20201112
